FAERS Safety Report 24296991 (Version 1)
Quarter: 2024Q3

REPORT INFORMATION
  Report Type: Spontaneous
  Country: FR (occurrence: FR)
  Receive Date: 20240909
  Receipt Date: 20240909
  Transmission Date: 20241017
  Serious: Yes (Death)
  Sender: AMGEN
  Company Number: FR-ROCHE-10000067357

PATIENT
  Age: 62 Year
  Sex: Female

DRUGS (3)
  1. BEVACIZUMAB [Suspect]
     Active Substance: BEVACIZUMAB
     Indication: Non-small cell lung cancer
     Dosage: DATE OF LAST ADMINISTRATION OF STUDY TREATMENT 11 JUL 2024
     Route: 065
     Dates: start: 20240412
  2. PACLITAXEL [Suspect]
     Active Substance: PACLITAXEL
     Indication: Non-small cell lung cancer
     Dosage: DATE OF LAST ADMINISTRATION OF STUDY TREATMENT 11 JUL 2024
     Route: 065
     Dates: start: 20240412
  3. TECENTRIQ [Suspect]
     Active Substance: ATEZOLIZUMAB
     Indication: Non-small cell lung cancer
     Dosage: DATE OF LAST ADMINISTRATION OF ATEZOLIZUMAB 11 JUL 2024
     Route: 065
     Dates: start: 20240412

REACTIONS (1)
  - Sudden death [Fatal]

NARRATIVE: CASE EVENT DATE: 20240729
